FAERS Safety Report 12796499 (Version 1)
Quarter: 2016Q3

REPORT INFORMATION
  Report Type: Report from Study
  Country: DE (occurrence: DE)
  Receive Date: 20160929
  Receipt Date: 20160929
  Transmission Date: 20161109
  Serious: Yes (Death)
  Sender: FDA-Public Use
  Company Number: US-ASTRAZENECA-2016SF03177

PATIENT
  Age: 6 Month
  Sex: Male
  Weight: 2.2 kg

DRUGS (5)
  1. SYNAGIS [Suspect]
     Active Substance: PALIVIZUMAB
     Indication: PREMATURE BABY
     Dosage: 51 MG
     Route: 030
     Dates: start: 20101008, end: 20101008
  2. SYNAGIS [Suspect]
     Active Substance: PALIVIZUMAB
     Indication: PREMATURE BABY
     Dosage: 75 MG
     Route: 030
     Dates: start: 20110106, end: 20110106
  3. SYNAGIS [Suspect]
     Active Substance: PALIVIZUMAB
     Indication: PREMATURE BABY
     Dosage: 82 MG
     Route: 030
     Dates: start: 20110208, end: 20110208
  4. SYNAGIS [Suspect]
     Active Substance: PALIVIZUMAB
     Indication: PREMATURE BABY
     Dosage: 68 MG
     Route: 030
     Dates: start: 20101104, end: 20101104
  5. SYNAGIS [Suspect]
     Active Substance: PALIVIZUMAB
     Indication: PREMATURE BABY
     Dosage: 68 MG
     Route: 030
     Dates: start: 20101207, end: 20101207

REACTIONS (1)
  - Death [Fatal]
